FAERS Safety Report 8713162 (Version 2)
Quarter: 2012Q4

REPORT INFORMATION
  Report Type: 
  Country: BR (occurrence: BR)
  Receive Date: 20120808
  Receipt Date: 20120924
  Transmission Date: 20130627
  Serious: Yes (Death, Other)
  Sender: FDA-Public Use
  Company Number: BR-PFIZER INC-2012189204

PATIENT
  Sex: Male

DRUGS (2)
  1. SUTENT [Suspect]
     Indication: GASTROINTESTINAL NEOPLASM
     Dosage: UNK
     Route: 048
     Dates: start: 20110215
  2. METFORMIN [Concomitant]
     Indication: DIABETES MELLITUS

REACTIONS (3)
  - Multi-organ failure [Fatal]
  - Disease progression [Unknown]
  - Gastrointestinal neoplasm [Unknown]
